FAERS Safety Report 18336261 (Version 4)
Quarter: 2022Q3

REPORT INFORMATION
  Report Type: Spontaneous
  Country: CA (occurrence: None)
  Receive Date: 20201001
  Receipt Date: 20220729
  Transmission Date: 20221027
  Serious: Yes (Hospitalization, Other)
  Sender: FDA-Public Use
  Company Number: 2020SF23655

PATIENT
  Age: 52 Year
  Sex: Female

DRUGS (20)
  1. BUDESONIDE [Suspect]
     Active Substance: BUDESONIDE
     Indication: Product used for unknown indication
     Route: 065
  2. BUDESONIDE [Suspect]
     Active Substance: BUDESONIDE
     Indication: Product used for unknown indication
     Route: 065
  3. PRASTERONE [Suspect]
     Active Substance: PRASTERONE
     Indication: Product used for unknown indication
     Route: 067
  4. ESTRADIOL [Suspect]
     Active Substance: ESTRADIOL
     Indication: Product used for unknown indication
     Route: 065
  5. LORATADINE [Suspect]
     Active Substance: LORATADINE
     Indication: Product used for unknown indication
     Dosage: 10.0MG UNKNOWN
     Route: 048
  6. PROGESTERONE [Suspect]
     Active Substance: PROGESTERONE
     Indication: Menopause
     Route: 065
  7. CRINONE [Suspect]
     Active Substance: PROGESTERONE
     Indication: Menopause
     Route: 065
  8. CRINONE [Suspect]
     Active Substance: PROGESTERONE
     Indication: Product used for unknown indication
     Route: 065
  9. PRASTERONE [Suspect]
     Active Substance: PRASTERONE
     Indication: Menopause
     Route: 067
  10. PRASTERONE [Suspect]
     Active Substance: PRASTERONE
     Indication: Product used for unknown indication
     Route: 067
  11. PRASTERONE [Suspect]
     Active Substance: PRASTERONE
     Indication: Menopause
     Route: 067
  12. PRASTERONE [Suspect]
     Active Substance: PRASTERONE
     Indication: Product used for unknown indication
     Route: 067
  13. PRASTERONE [Suspect]
     Active Substance: PRASTERONE
     Indication: Menopause
     Route: 067
  14. PRASTERONE [Suspect]
     Active Substance: PRASTERONE
     Indication: Product used for unknown indication
     Route: 067
  15. PRASTERONE [Suspect]
     Active Substance: PRASTERONE
     Route: 065
  16. CLARITIN [Suspect]
     Active Substance: LORATADINE
     Indication: Product used for unknown indication
     Dosage: 10.0MG UNKNOWN
     Route: 048
  17. GLICLAZIDE [Concomitant]
     Active Substance: GLICLAZIDE
     Route: 065
  18. GLICLAZIDE [Concomitant]
     Active Substance: GLICLAZIDE
     Route: 065
  19. CLARITIN [Concomitant]
     Active Substance: LORATADINE
  20. BUDESONIDE [Concomitant]
     Active Substance: BUDESONIDE

REACTIONS (12)
  - Butterfly rash [Unknown]
  - Cellulitis [Unknown]
  - Feeling hot [Unknown]
  - Photosensitivity reaction [Unknown]
  - Tinnitus [Unknown]
  - Headache [Unknown]
  - Periorbital oedema [Unknown]
  - Rash [Unknown]
  - Swelling face [Unknown]
  - Head discomfort [Unknown]
  - Off label use [Unknown]
  - Product use in unapproved indication [Unknown]
